FAERS Safety Report 23970753 (Version 1)
Quarter: 2024Q2

REPORT INFORMATION
  Report Type: Spontaneous
  Country: FR (occurrence: None)
  Receive Date: 20240613
  Receipt Date: 20240613
  Transmission Date: 20240715
  Serious: Yes (Other)
  Sender: FDA-Public Use
  Company Number: 2024A132001

PATIENT
  Age: 57 Year
  Sex: Female
  Weight: 61.3 kg

DRUGS (1)
  1. IMFINZI [Suspect]
     Active Substance: DURVALUMAB
     Indication: Large cell lung cancer stage III
     Route: 042
     Dates: start: 20211212, end: 20230626

REACTIONS (2)
  - Cutaneous vasculitis [Recovered/Resolved]
  - Dermatitis bullous [Recovered/Resolved]

NARRATIVE: CASE EVENT DATE: 20220825
